FAERS Safety Report 20013627 (Version 4)
Quarter: 2023Q1

REPORT INFORMATION
  Report Type: Report from Study
  Country: IT (occurrence: None)
  Receive Date: 20211029
  Receipt Date: 20230307
  Transmission Date: 20230417
  Serious: Yes (Hospitalization)
  Sender: FDA-Public Use
  Company Number: IT-ROCHE-2943645

PATIENT
  Age: 86 Year
  Sex: Female
  Weight: 65 kg

DRUGS (3)
  1. ATEZOLIZUMAB [Suspect]
     Active Substance: ATEZOLIZUMAB
     Indication: Hepatocellular carcinoma
     Dosage: THE MOST RECENT DOSE OF ATEZOLIZUMAB PRIOR TO AE/SAE 20/AUG/2021, LAST ATEZOLIZUMAB ADMINISTERED PRI
     Route: 041
     Dates: start: 20210526
  2. BEVACIZUMAB [Suspect]
     Active Substance: BEVACIZUMAB
     Indication: Hepatocellular carcinoma
     Dosage: MOST RECENT DOSE OF BEVACIZUMAB PRIOR TO AE/SAE : 20/AUG/2021. LAST DOSE OF BEVACIZUMAB PRIOR TO AE
     Route: 042
     Dates: start: 20210526
  3. PREDNISONE [Concomitant]
     Active Substance: PREDNISONE
     Dates: start: 20211011, end: 20211024

REACTIONS (1)
  - Dermatitis bullous [Recovered/Resolved]

NARRATIVE: CASE EVENT DATE: 20211011
